FAERS Safety Report 13341920 (Version 1)
Quarter: 2017Q1

REPORT INFORMATION
  Report Type: Spontaneous
  Country: US (occurrence: US)
  Receive Date: 20170316
  Receipt Date: 20170316
  Transmission Date: 20170428
  Serious: No
  Sender: FDA-Public Use
  Company Number: US-ROCHE-1473185

PATIENT
  Sex: Male

DRUGS (3)
  1. XENICAL [Suspect]
     Active Substance: ORLISTAT
     Indication: BLOOD CHOLESTEROL INCREASED
     Route: 065
     Dates: start: 2011, end: 201405
  2. XENICAL [Suspect]
     Active Substance: ORLISTAT
     Indication: BLOOD TRIGLYCERIDES INCREASED
  3. ALLI [Concomitant]
     Active Substance: ORLISTAT

REACTIONS (1)
  - Abdominal pain upper [Recovered/Resolved]
